FAERS Safety Report 19389965 (Version 1)
Quarter: 2021Q2

REPORT INFORMATION
  Report Type: Report from Study
  Country: IT (occurrence: IT)
  Receive Date: 20210608
  Receipt Date: 20210608
  Transmission Date: 20210717
  Serious: Yes (Other)
  Sender: FDA-Public Use
  Company Number: IT-TEVA-2021-IT-1920664

PATIENT
  Age: 57 Year
  Sex: Male

DRUGS (8)
  1. ATENOLOL HYDROCHLORIDE [Suspect]
     Active Substance: ATENOLOL HYDROCHLORIDE
     Indication: PRODUCT USED FOR UNKNOWN INDICATION
     Dosage: 50MILLIGRAM
     Dates: start: 20210101, end: 20210408
  2. PREGABALIN. [Suspect]
     Active Substance: PREGABALIN
     Indication: PRODUCT USED FOR UNKNOWN INDICATION
     Dates: start: 20210101, end: 20210408
  3. LASIX [Suspect]
     Active Substance: FUROSEMIDE
     Indication: PRODUCT USED FOR UNKNOWN INDICATION
     Dates: start: 20210101, end: 20210408
  4. KCL?RETARD 600 MG COMPRESSE A RILASCIO PROLUNGATO [Concomitant]
     Active Substance: POTASSIUM CHLORIDE
     Dosage: EXTENDED RELEASE
  5. DOBETIN [Concomitant]
  6. SINVACOR 40 MG COMPRESSE RIVESTITE CON FILM [Concomitant]
     Active Substance: SIMVASTATIN
  7. KANRENOL [Concomitant]
     Active Substance: CANRENOATE POTASSIUM
  8. TAMSULOSIN HYDROCHLORIDE. [Suspect]
     Active Substance: TAMSULOSIN HYDROCHLORIDE
     Indication: PRODUCT USED FOR UNKNOWN INDICATION
     Dates: start: 20210101, end: 20210408

REACTIONS (2)
  - Hypotension [Recovering/Resolving]
  - Syncope [Recovering/Resolving]

NARRATIVE: CASE EVENT DATE: 20210408
